FAERS Safety Report 9249507 (Version 1)
Quarter: 2013Q2

REPORT INFORMATION
  Report Type: Spontaneous
  Country: DE (occurrence: DE)
  Receive Date: 20130423
  Receipt Date: 20130423
  Transmission Date: 20140414
  Serious: Yes (Other)
  Sender: FDA-Public Use
  Company Number: DE-VIIV HEALTHCARE LIMITED-D0079314A

PATIENT
  Age: 0 None
  Sex: Male
  Weight: 3.4 kg

DRUGS (1)
  1. RETROVIR [Suspect]
     Dosage: 60MG PER DAY
     Route: 048
     Dates: start: 20130328

REACTIONS (2)
  - Lactic acidosis [Recovered/Resolved]
  - Accidental overdose [Unknown]
